FAERS Safety Report 5756726-0 (Version None)
Quarter: 2008Q2

REPORT INFORMATION
  Report Type: 
  Country: None (occurrence: None)
  Receive Date: 20080529
  Receipt Date: 20080517
  Transmission Date: 20081010
  Serious: Yes (Hospitalization)
  Sender: FDA-Public Use
  Company Number: 2008US001287

PATIENT
  Age: 75 Year
  Sex: Male

DRUGS (12)
  1. VESICARE [Suspect]
     Indication: POLLAKIURIA
     Dosage: 5 MG, UID/QD, ORAL
     Route: 048
     Dates: start: 20080416, end: 20080501
  2. ARICEPT [Suspect]
     Indication: DEMENTIA
     Dosage: 5 MG, UID/QD, ORAL
     Route: 048
     Dates: start: 20080331, end: 20080422
  3. AGGRENOX [Concomitant]
  4. LIPITOR [Concomitant]
  5. CARDIZEM CD [Concomitant]
  6. SPIRIVA [Concomitant]
  7. PROVENTIL [Concomitant]
  8. ZOLOFT [Concomitant]
  9. PROTONIX [Concomitant]
  10. ASPIRIN [Concomitant]
  11. FLOVENT [Concomitant]
  12. ATENOLOL [Concomitant]

REACTIONS (7)
  - ABDOMINAL PAIN UPPER [None]
  - DIZZINESS [None]
  - DRUG INTERACTION [None]
  - DRY MOUTH [None]
  - FALL [None]
  - HALLUCINATION [None]
  - SOMNOLENCE [None]
